FAERS Safety Report 6201656-3 (Version None)
Quarter: 2009Q2

REPORT INFORMATION
  Report Type: 
  Country: None (occurrence: None)
  Receive Date: 20090526
  Receipt Date: 20080714
  Transmission Date: 20091009
  Serious: No
  Sender: FDA-Public Use
  Company Number: US-BRISTOL-MYERS SQUIBB COMPANY-14196919

PATIENT
  Age: 17 Year
  Sex: Male

DRUGS (1)
  1. BARACLUDE [Suspect]
     Indication: HEPATITIS B
     Dosage: DOSE WAS 1MG/DAY REDUCED TO 0.5MG EVERY OTHER DAY
     Route: 048
     Dates: start: 20060511, end: 20080630

REACTIONS (1)
  - BLOOD LACTIC ACID INCREASED [None]
